FAERS Safety Report 6196010-7 (Version None)
Quarter: 2009Q2

REPORT INFORMATION
  Report Type: 
  Country: None (occurrence: None)
  Receive Date: 20090520
  Receipt Date: 20070222
  Transmission Date: 20091009
  Serious: Yes (Death, Hospitalization)
  Sender: FDA-Public Use
  Company Number: NL-ROCHE-344474

PATIENT
  Sex: Male

DRUGS (8)
  1. CAPECITABINE [Suspect]
     Dosage: INTERMITTENT THERAPY OF TWO WEEKS TREATMENT ONE WEEK REST
     Route: 048
     Dates: start: 20030719, end: 20030730
  2. CAPECITABINE [Suspect]
     Route: 048
     Dates: start: 20030718, end: 20030718
  3. CAPECITABINE [Suspect]
     Route: 048
     Dates: start: 20030624, end: 20030707
  4. ACETYLSALICYLIC ACID [Concomitant]
  5. NADROPARINE [Concomitant]
  6. PANTOPRAZOL [Concomitant]
  7. LOPERAMIDE HCL [Concomitant]
  8. FLUCONAZOLE [Concomitant]

REACTIONS (2)
  - DIARRHOEA [None]
  - DYSPHAGIA [None]
